FAERS Safety Report 5417255-7 (Version None)
Quarter: 2007Q3

REPORT INFORMATION
  Report Type: 
  Country: None (occurrence: None)
  Receive Date: 20070816
  Receipt Date: 20070808
  Transmission Date: 20080115
  Serious: Yes (Other)
  Sender: FDA-Public Use
  Company Number: US-SHR-US-2007-024655

PATIENT
  Age: 52 Year
  Sex: Female
  Weight: 85.7 kg

DRUGS (6)
  1. MIRENA [Suspect]
     Dosage: 20 A?G/DAY, CONT
     Route: 015
     Dates: start: 20070611
  2. SYNTHROID [Concomitant]
     Dosage: .137 MG, UNK
  3. WELLBUTRIN - SLOW RELEASE [Concomitant]
     Dosage: 100 MG, UNK
  4. FERROUS GLUCONATE [Concomitant]
     Dosage: 24 MG, UNK
  5. PRILOSEC [Concomitant]
     Dosage: UNK, AS REQ'D
  6. EXCEDRIN (MIGRAINE) [Concomitant]
     Dosage: UNK, AS REQ'D

REACTIONS (9)
  - ABDOMINAL DISTENSION [None]
  - ABDOMINAL PAIN LOWER [None]
  - AMNESIA [None]
  - CONVULSION [None]
  - DIZZINESS [None]
  - DYSGEUSIA [None]
  - GENITAL HAEMORRHAGE [None]
  - STARING [None]
  - SYNCOPE VASOVAGAL [None]
